FAERS Safety Report 5700411-8 (Version None)
Quarter: 2008Q2

REPORT INFORMATION
  Report Type: 
  Country: None (occurrence: None)
  Receive Date: 20080408
  Receipt Date: 20080408
  Transmission Date: 20081010
  Serious: Yes (Hospitalization)
  Sender: FDA-Public Use
  Company Number: None

PATIENT
  Sex: Male

DRUGS (1)
  1. SEPTOCAINE [Suspect]
     Indication: LOCAL ANAESTHESIA
     Dosage: PARENTERAL
     Route: 051

REACTIONS (6)
  - DRUG EFFECT PROLONGED [None]
  - DRUG SCREEN POSITIVE [None]
  - HYPOAESTHESIA [None]
  - JAW DISORDER [None]
  - ORAL DISCOMFORT [None]
  - TONGUE DISORDER [None]
